FAERS Safety Report 8509278-6 (Version None)
Quarter: 2012Q3

REPORT INFORMATION
  Report Type: 
  Country: None (occurrence: None)
  Receive Date: 20120713
  Receipt Date: 20120705
  Transmission Date: 20120928
  Serious: Yes (Hospitalization, Disabling)
  Sender: FDA-Public Use
  Company Number: FI-ROCHE-1084792

PATIENT
  Sex: Female

DRUGS (9)
  1. MEDROL [Concomitant]
     Route: 048
  2. VITAMIN D [Concomitant]
  3. DIDRONEL [Suspect]
     Indication: OSTEOPOROSIS
     Route: 048
  4. FOSAMAX [Suspect]
     Indication: OSTEOPOROSIS
     Route: 048
  5. CALCIUM [Concomitant]
  6. BONIVA [Suspect]
     Indication: OSTEOPOROSIS
     Route: 048
     Dates: start: 20070101, end: 20100101
  7. CALCIUM [Suspect]
     Indication: OSTEOPOROSIS
     Route: 048
  8. HUMIRA [Concomitant]
     Indication: RHEUMATOID ARTHRITIS
  9. ZOLEDRONOC ACID [Suspect]
     Indication: OSTEOPOROSIS
     Route: 042

REACTIONS (3)
  - HAND FRACTURE [None]
  - FRACTURE DELAYED UNION [None]
  - FEMUR FRACTURE [None]
